FAERS Safety Report 18250660 (Version 1)
Quarter: 2020Q3

REPORT INFORMATION
  Report Type: Spontaneous
  Country: US (occurrence: US)
  Receive Date: 20200909
  Receipt Date: 20200909
  Transmission Date: 20201103
  Serious: Yes (Hospitalization, Disabling, Other)
  Sender: FDA-Public Use
  Company Number: US-PURDUE-USA-2020-0165183

PATIENT
  Sex: Male

DRUGS (3)
  1. OXYCODONE HYDROCHLORIDE (SIMILAR TO NDA 22?272) [Suspect]
     Active Substance: OXYCODONE HYDROCHLORIDE
     Indication: BACK PAIN
     Dosage: 30 MG, Q4? 6H PRN
     Route: 048
  2. HEROIN [Suspect]
     Active Substance: DIAMORPHINE
     Indication: PRODUCT USED FOR UNKNOWN INDICATION
     Route: 065
  3. OXYCODONE HYDROCHLORIDE (SIMILAR TO NDA 22?272) [Suspect]
     Active Substance: OXYCODONE HYDROCHLORIDE
     Indication: PAIN

REACTIONS (17)
  - Memory impairment [Unknown]
  - Hypoalbuminaemia [Unknown]
  - Hypoxia [Unknown]
  - Amnesia [Unknown]
  - Malnutrition [Unknown]
  - Drug abuse [Unknown]
  - Respiratory failure [Unknown]
  - Brain oedema [Unknown]
  - Coma [Recovered/Resolved]
  - Drug dependence [Unknown]
  - Pneumonia aspiration [Unknown]
  - Apnoea [Unknown]
  - Cognitive disorder [Unknown]
  - Overdose [Unknown]
  - Hypertension [Unknown]
  - Hypoxic-ischaemic encephalopathy [Unknown]
  - Mental disorder [Unknown]
